FAERS Safety Report 7771288-4 (Version None)
Quarter: 2011Q3

REPORT INFORMATION
  Report Type: 
  Country: None (occurrence: None)
  Receive Date: 20110920
  Receipt Date: 20110908
  Transmission Date: 20111222
  Serious: Yes (Other)
  Sender: FDA-Public Use
  Company Number: US-2011-10613

PATIENT
  Age: 28 Year
  Sex: Female

DRUGS (8)
  1. ACYCLOVIR [Concomitant]
  2. ATIVAN [Concomitant]
  3. ETOPOSIDE [Concomitant]
  4. CYCLOPHOSPHAMIDE [Concomitant]
  5. BUSULFAN [Suspect]
     Indication: STEM CELL TRANSPLANT
     Dosage: 47;236  MG, DAILY DOSE, INTRAVENOUS
     Route: 042
     Dates: start: 20110509, end: 20110509
  6. BUSULFAN [Suspect]
     Indication: STEM CELL TRANSPLANT
     Dosage: 47;236  MG, DAILY DOSE, INTRAVENOUS
     Route: 042
     Dates: start: 20110512, end: 20110515
  7. AMBIEN [Concomitant]
  8. ZOFRAN [Concomitant]

REACTIONS (4)
  - OBSTRUCTIVE AIRWAYS DISORDER [None]
  - TOXICITY TO VARIOUS AGENTS [None]
  - FORCED EXPIRATORY VOLUME DECREASED [None]
  - RESTRICTIVE PULMONARY DISEASE [None]
